FAERS Safety Report 5317336-2 (Version None)
Quarter: 2007Q2

REPORT INFORMATION
  Report Type: 
  Country: None (occurrence: None)
  Receive Date: 20070504
  Receipt Date: 20070424
  Transmission Date: 20071010
  Serious: Yes (Other)
  Sender: FDA-Public Use
  Company Number: US-PFIZER INC-2007033994

PATIENT
  Sex: Female

DRUGS (4)
  1. DILANTIN [Suspect]
     Indication: CONVULSION
     Dosage: DAILY DOSE:500MG
  2. CHANTIX [Suspect]
     Indication: SMOKING CESSATION THERAPY
  3. VALSARTAN [Suspect]
     Indication: HYPERTENSION
     Dates: start: 20050101
  4. PREMARIN [Concomitant]

REACTIONS (2)
  - ANTICONVULSANT DRUG LEVEL INCREASED [None]
  - HYPERTENSION [None]
